FAERS Safety Report 4408622-9 (Version None)
Quarter: 2004Q3

REPORT INFORMATION
  Report Type: 
  Country: None (occurrence: None)
  Receive Date: 20040723
  Receipt Date: 20040123
  Transmission Date: 20050211
  Serious: Yes (Hospitalization, Other)
  Sender: FDA-Public Use
  Company Number: CA-JNJFOC-20040604978

PATIENT
  Age: 10 Month
  Sex: Male
  Weight: 8.1 kg

DRUGS (1)
  1. TYLENOL [Suspect]
     Indication: PYREXIA
     Dosage: 200 MG, 1 IN 4 HOUR, ORAL
     Route: 048
     Dates: start: 20040103, end: 20040107

REACTIONS (6)
  - ALANINE AMINOTRANSFERASE INCREASED [None]
  - ASPARTATE AMINOTRANSFERASE INCREASED [None]
  - LABORATORY TEST ABNORMAL [None]
  - MEDICATION ERROR [None]
  - PRESCRIBED OVERDOSE [None]
  - VOMITING [None]
